FAERS Safety Report 8370805-3 (Version None)
Quarter: 2012Q2

REPORT INFORMATION
  Report Type: 
  Country: None (occurrence: None)
  Receive Date: 20120518
  Receipt Date: 20111230
  Transmission Date: 20120825
  Serious: No
  Sender: FDA-Public Use
  Company Number: US-ASTRAZENECA-2012SE01123

PATIENT

DRUGS (2)
  1. PRILOSEC OTC [Suspect]
     Indication: GASTROOESOPHAGEAL REFLUX DISEASE
     Route: 048
     Dates: start: 20111204
  2. BISMUTH SUBSALICYLATE [Concomitant]
     Dosage: UNKNOWN

REACTIONS (5)
  - NECK PAIN [None]
  - WEIGHT DECREASED [None]
  - DIZZINESS [None]
  - NAUSEA [None]
  - MUSCULOSKELETAL PAIN [None]
